FAERS Safety Report 4504760-0 (Version None)
Quarter: 2004Q4

REPORT INFORMATION
  Report Type: 
  Country: None (occurrence: None)
  Receive Date: 20041118
  Receipt Date: 20041116
  Transmission Date: 20050328
  Serious: Yes (Hospitalization, Disabling)
  Sender: FDA-Public Use
  Company Number: DE-MERCK-0411DEU00335

PATIENT
  Age: 83 Year
  Sex: Female
  Weight: 82 kg

DRUGS (7)
  1. VIOXX [Suspect]
     Indication: BACK PAIN
     Route: 048
     Dates: start: 20030201, end: 20040912
  2. VIOXX [Suspect]
     Indication: PAIN IN EXTREMITY
     Route: 048
     Dates: start: 20030201, end: 20040912
  3. ACETYLDIGOXIN [Concomitant]
     Indication: ARRHYTHMIA
     Route: 048
     Dates: start: 19991007
  4. ACETYLDIGOXIN [Concomitant]
     Indication: ATRIAL FIBRILLATION
     Route: 048
     Dates: start: 19991007
  5. CARVEDILOL [Concomitant]
     Indication: HYPERTENSION
     Route: 048
     Dates: start: 20040713
  6. PIRETANIDE [Concomitant]
     Indication: CARDIAC FAILURE
     Route: 048
     Dates: start: 20040605
  7. PIRETANIDE [Concomitant]
     Route: 048
     Dates: start: 20040605

REACTIONS (2)
  - CEREBRAL ARTERY OCCLUSION [None]
  - CEREBRAL INFARCTION [None]
